FAERS Safety Report 5655915-3 (Version None)
Quarter: 2008Q1

REPORT INFORMATION
  Report Type: 
  Country: None (occurrence: None)
  Receive Date: 20080307
  Receipt Date: 20080213
  Transmission Date: 20080703
  Serious: No
  Sender: FDA-Public Use
  Company Number: US-BOEHRINGER INGELHEIM GMBH, GERMANY-2008-BP-02257BP

PATIENT
  Sex: Female

DRUGS (1)
  1. ZANTAC 150 [Suspect]
     Route: 048
     Dates: start: 20080212, end: 20080212

REACTIONS (4)
  - ERYTHEMA [None]
  - EYE SWELLING [None]
  - PRURITUS [None]
  - SWELLING FACE [None]
